FAERS Safety Report 11638411 (Version 1)
Quarter: 2015Q4

REPORT INFORMATION
  Report Type: Spontaneous
  Country: CO (occurrence: CO)
  Receive Date: 20151016
  Receipt Date: 20151016
  Transmission Date: 20160304
  Serious: Yes (Hospitalization)
  Sender: FDA-Public Use
  Company Number: CO-JNJFOC-20151007856

PATIENT
  Age: 52 Year
  Sex: Female
  Weight: 85 kg

DRUGS (3)
  1. LITHIUM CARBONATE. [Concomitant]
     Active Substance: LITHIUM CARBONATE
     Route: 065
  2. RISPERDAL CONSTA [Suspect]
     Active Substance: RISPERIDONE
     Indication: BIPOLAR DISORDER
     Route: 030
     Dates: start: 20140416
  3. VALPROIC ACID. [Concomitant]
     Active Substance: VALPROIC ACID
     Route: 065

REACTIONS (6)
  - Irritability [Not Recovered/Not Resolved]
  - Drug dose omission [Unknown]
  - Product use issue [Unknown]
  - Insomnia [Not Recovered/Not Resolved]
  - Aggression [Not Recovered/Not Resolved]
  - Off label use [Unknown]

NARRATIVE: CASE EVENT DATE: 20151007
